FAERS Safety Report 23436644 (Version 2)
Quarter: 2024Q1

REPORT INFORMATION
  Report Type: Spontaneous
  Country: US (occurrence: US)
  Receive Date: 20240124
  Receipt Date: 20240315
  Transmission Date: 20240410
  Serious: No
  Sender: FDA-Public Use
  Company Number: US-BRISTOL-MYERS SQUIBB COMPANY-2024-011685

PATIENT
  Age: 45 Year
  Sex: Female

DRUGS (2)
  1. SPRYCEL [Suspect]
     Active Substance: DASATINIB
     Indication: Chronic myeloid leukaemia
     Route: 048
     Dates: start: 202312
  2. SPRYCEL [Suspect]
     Active Substance: DASATINIB
     Indication: Philadelphia chromosome positive
     Route: 048

REACTIONS (8)
  - Headache [Recovering/Resolving]
  - Pyrexia [Recovering/Resolving]
  - Rash [Unknown]
  - Acne [Not Recovered/Not Resolved]
  - Brain fog [Not Recovered/Not Resolved]
  - Nausea [Unknown]
  - Fatigue [Not Recovered/Not Resolved]
  - Off label use [Unknown]
